FAERS Safety Report 5509747-7 (Version None)
Quarter: 2007Q4

REPORT INFORMATION
  Report Type: 
  Country: None (occurrence: None)
  Receive Date: 20071107
  Receipt Date: 20071107
  Transmission Date: 20080405
  Serious: Yes (Hospitalization)
  Sender: FDA-Public Use
  Company Number: None

PATIENT
  Age: 70 Year
  Sex: Male
  Weight: 97.6 kg

DRUGS (7)
  1. BORTEZOMIB [Suspect]
     Indication: MANTLE CELL LYMPHOMA
     Dosage: 1.3MG/M2 ON DAYS 1 + 4
     Dates: start: 20070910, end: 20071025
  2. RITUXAN [Suspect]
     Indication: MANTLE CELL LYMPHOMA
     Dosage: 375MG/M2 ON DAY 1
     Dates: start: 20070910, end: 20071025
  3. ATIVAN [Concomitant]
  4. AUGMENTIN (AMOXICILLIN/CLAV.ACID) [Concomitant]
  5. PREDNISONE TAB [Concomitant]
  6. TYLENOL #3 (ACETAMINOPHEN W/CODEINE) [Concomitant]
  7. ZOFRAN (CHEMO N/V) (ONDANSETRON HCL (CHEMO N/V)) [Concomitant]

REACTIONS (2)
  - FURUNCLE [None]
  - PERIRECTAL ABSCESS [None]
